FAERS Safety Report 8111060-9 (Version None)
Quarter: 2012Q1

REPORT INFORMATION
  Report Type: 
  Country: None (occurrence: None)
  Receive Date: 20120203
  Receipt Date: 20110322
  Transmission Date: 20120608
  Serious: No
  Sender: FDA-Public Use
  Company Number: US-GLAXOSMITHKLINE-A0919433A

PATIENT
  Age: 19 Year
  Sex: Female
  Weight: 54 kg

DRUGS (4)
  1. LAMICTAL [Suspect]
     Dosage: 150MG TWICE PER DAY
     Route: 048
  2. IRON [Concomitant]
     Dosage: 1TAB PER DAY
     Route: 048
  3. CALCIUM [Concomitant]
     Dosage: 1TAB PER DAY
     Route: 048
  4. ASCORBIC ACID [Concomitant]
     Dosage: 1TAB PER DAY
     Route: 048

REACTIONS (2)
  - COELIAC DISEASE [None]
  - STEATORRHOEA [None]
